FAERS Safety Report 8332746-7 (Version None)
Quarter: 2012Q2

REPORT INFORMATION
  Report Type: 
  Country: None (occurrence: None)
  Receive Date: 20120503
  Receipt Date: 20111010
  Transmission Date: 20120825
  Serious: Yes (Life-Threatening, Hospitalization, Other)
  Sender: FDA-Public Use
  Company Number: CA-BAYER-2011-073696

PATIENT
  Age: 85 Year
  Sex: Male
  Weight: 100 kg

DRUGS (10)
  1. ATACAND [Concomitant]
     Dosage: 16 MG DAILY
     Route: 048
  2. XARELTO [Interacting]
     Indication: KNEE ARTHROPLASTY
     Dosage: 10 MG
     Route: 048
     Dates: start: 20110206
  3. ASPIRIN [Interacting]
  4. CLOPIDOGREL [Interacting]
     Dosage: 75 MG DAILY
     Route: 048
  5. XARELTO [Interacting]
     Indication: THROMBOSIS PROPHYLAXIS
     Dosage: 10 MG
     Route: 048
     Dates: start: 20110201, end: 20110203
  6. CLOPIDOGREL [Interacting]
     Indication: CEREBROVASCULAR ACCIDENT PROPHYLAXIS
     Dosage: 75 MG
     Dates: start: 20110201, end: 20110206
  7. AMLODIPINE [Concomitant]
     Dosage: 5 MG DAILY
     Route: 048
  8. SENOKOT [Concomitant]
     Dosage: 1 DF
     Route: 048
  9. ASPIRIN [Suspect]
     Indication: CEREBROVASCULAR ACCIDENT PROPHYLAXIS
     Dosage: 81 MG
     Route: 048
     Dates: start: 20110201, end: 20110206
  10. LIPITOR [Concomitant]
     Dosage: 10 MG DAILY
     Route: 048

REACTIONS (12)
  - BLOOD CREATININE INCREASED [None]
  - BLOOD PRESSURE DECREASED [None]
  - GASTRIC ULCER [None]
  - HEART RATE INCREASED [None]
  - HELICOBACTER INFECTION [None]
  - ABDOMINAL DISTENSION [None]
  - DYSPNOEA [None]
  - GASTROINTESTINAL HAEMORRHAGE [None]
  - METABOLIC ACIDOSIS [None]
  - INCISION SITE HAEMORRHAGE [None]
  - HAEMOGLOBIN DECREASED [None]
  - POSTOPERATIVE ILEUS [None]
